FAERS Safety Report 6444111-8 (Version None)
Quarter: 2009Q4

REPORT INFORMATION
  Report Type: 
  Country: None (occurrence: None)
  Receive Date: 20091118
  Receipt Date: 20091109
  Transmission Date: 20100525
  Serious: Yes (Disabling)
  Sender: FDA-Public Use
  Company Number: AU-ASTRAZENECA-2009SE24798

PATIENT
  Age: 61 Year
  Sex: Male
  Weight: 81 kg

DRUGS (1)
  1. ROSUVASTATIN CALCIUM [Suspect]
     Indication: METABOLIC DISORDER
     Route: 048
     Dates: start: 20070707, end: 20080101

REACTIONS (1)
  - ERECTILE DYSFUNCTION [None]
